FAERS Safety Report 5358941-7 (Version None)
Quarter: 2007Q2

REPORT INFORMATION
  Report Type: 
  Country: None (occurrence: None)
  Receive Date: 20070615
  Receipt Date: 20070608
  Transmission Date: 20071010
  Serious: Yes (Life-Threatening, Hospitalization)
  Sender: FDA-Public Use
  Company Number: B0475223A

PATIENT
  Age: 33 Year
  Sex: Female

DRUGS (1)
  1. AUGMENTIN '125' [Suspect]
     Indication: ACUTE TONSILLITIS
     Dosage: 625MG THREE TIMES PER DAY
     Route: 048
     Dates: start: 20070212, end: 20070215

REACTIONS (3)
  - CLOSTRIDIAL INFECTION [None]
  - COLITIS [None]
  - PSEUDOMEMBRANOUS COLITIS [None]
